FAERS Safety Report 10073363 (Version 1)
Quarter: 2014Q2

REPORT INFORMATION
  Report Type: Report from Study
  Country: FI (occurrence: FI)
  Receive Date: 20140411
  Receipt Date: 20140411
  Transmission Date: 20141212
  Serious: Yes (Other)
  Sender: FDA-Public Use
  Company Number: PHHY2013FI098048

PATIENT
  Age: 25 Year
  Sex: Female

DRUGS (13)
  1. AFINITOR [Suspect]
     Indication: HODGKIN^S DISEASE
     Dosage: 1 DF, UNK
     Route: 048
     Dates: start: 20130424
  2. AFINITOR [Suspect]
     Indication: OFF LABEL USE
  3. FLAGYL [Concomitant]
     Indication: CLOSTRIDIUM DIFFICILE INFECTION
     Dates: start: 201304, end: 20130428
  4. IMOVANE [Concomitant]
     Indication: INSOMNIA
  5. PANADOL [Concomitant]
     Indication: HEADACHE
  6. PANACOD [Concomitant]
     Indication: HEADACHE
  7. MYCOSTATIN [Concomitant]
     Indication: ORAL FUNGAL INFECTION
  8. TRAMAL [Concomitant]
     Indication: ORAL PAIN
  9. HISTEC [Concomitant]
     Indication: PRURITUS
  10. CORTISONE [Concomitant]
     Indication: RASH
  11. CORTISONE [Concomitant]
     Indication: PRURITUS
  12. ATARAX [Concomitant]
     Indication: PRURITUS
  13. CODESAN COMP [Concomitant]
     Indication: COUGH

REACTIONS (30)
  - Self-injurious ideation [Unknown]
  - Lymphadenopathy [Unknown]
  - Oral pain [Recovered/Resolved]
  - Pneumonitis [Unknown]
  - Rash [Unknown]
  - C-reactive protein increased [Unknown]
  - Feeling abnormal [Unknown]
  - Heart rate increased [Unknown]
  - Hypotension [Unknown]
  - Affective disorder [Unknown]
  - Pain in extremity [Unknown]
  - Lung disorder [Unknown]
  - Back pain [Unknown]
  - Oropharyngeal pain [Unknown]
  - Toothache [Unknown]
  - Fatigue [Unknown]
  - Headache [Unknown]
  - Urinary tract infection fungal [Unknown]
  - Blood cholesterol increased [Unknown]
  - Oral fungal infection [Unknown]
  - Dyspnoea [Unknown]
  - Alanine aminotransferase increased [Unknown]
  - Decreased appetite [Unknown]
  - Peripheral swelling [Unknown]
  - Insomnia [Unknown]
  - Abdominal pain upper [Unknown]
  - Pruritus [Unknown]
  - Cough [Unknown]
  - Haemoglobin decreased [Unknown]
  - Drug ineffective [Unknown]
